FAERS Safety Report 19753187 (Version 1)
Quarter: 2021Q3

REPORT INFORMATION
  Report Type: Spontaneous
  Country: US (occurrence: US)
  Receive Date: 20210826
  Receipt Date: 20210826
  Transmission Date: 20211014
  Serious: No
  Sender: FDA-Public Use
  Company Number: US-ENDO PHARMACEUTICALS INC-2020-006528

PATIENT
  Sex: Male

DRUGS (1)
  1. OXYCODONE HYDROCHLORIDE, ACETAMINOPHEN [Suspect]
     Active Substance: ACETAMINOPHEN\OXYCODONE HYDROCHLORIDE
     Indication: PAIN
     Dosage: 1 DF, TID OR AS NEEDED
     Dates: start: 2017

REACTIONS (5)
  - Nausea [Unknown]
  - Drug ineffective [Unknown]
  - Retching [Unknown]
  - Balance disorder [Unknown]
  - Epigastric discomfort [Unknown]

NARRATIVE: CASE EVENT DATE: 2017
